FAERS Safety Report 18525495 (Version 2)
Quarter: 2020Q4

REPORT INFORMATION
  Report Type: Spontaneous
  Country: US (occurrence: US)
  Receive Date: 20201120
  Receipt Date: 20201203
  Transmission Date: 20210114
  Serious: Yes (Other)
  Sender: FDA-Public Use
  Company Number: US-ALLERGAN-1952714US

PATIENT
  Age: 64 Year
  Sex: Male

DRUGS (3)
  1. TEFLARO [Suspect]
     Active Substance: CEFTAROLINE FOSAMIL
     Indication: CELLULITIS
     Dosage: UNK UNK, SINGLE
  2. DALVANCE [Suspect]
     Active Substance: DALBAVANCIN
     Dosage: 1500 MG, SINGLE
     Route: 042
     Dates: start: 20191206, end: 20191206
  3. DALVANCE [Suspect]
     Active Substance: DALBAVANCIN
     Indication: CELLULITIS
     Dosage: 1500 MG, SINGLE
     Route: 042
     Dates: start: 20191212, end: 20191212

REACTIONS (2)
  - Neutropenia [Not Recovered/Not Resolved]
  - Therapeutic product effect decreased [Unknown]
